FAERS Safety Report 16089588 (Version 2)
Quarter: 2019Q2

REPORT INFORMATION
  Report Type: Spontaneous
  Country: US (occurrence: US)
  Receive Date: 20190319
  Receipt Date: 20190624
  Transmission Date: 20190711
  Serious: No
  Sender: FDA-Public Use
  Company Number: US-SA-2019SA069709

PATIENT
  Age: 31 Year
  Sex: Male

DRUGS (2)
  1. FABRAZYME [Suspect]
     Active Substance: AGALSIDASE BETA
     Dosage: 30 MG, QOW
     Route: 041
     Dates: start: 20190128
  2. FABRAZYME [Suspect]
     Active Substance: AGALSIDASE BETA
     Indication: FABRY^S DISEASE
     Dosage: 35 MG, QOW
     Route: 041
     Dates: start: 20190128

REACTIONS (3)
  - Inappropriate schedule of product administration [Unknown]
  - Influenza [Unknown]
  - Nasopharyngitis [Unknown]
